FAERS Safety Report 8231501-6 (Version None)
Quarter: 2012Q1

REPORT INFORMATION
  Report Type: 
  Country: None (occurrence: None)
  Receive Date: 20120323
  Receipt Date: 20120316
  Transmission Date: 20120608
  Serious: Yes (Other)
  Sender: FDA-Public Use
  Company Number: PHHY2012FR024623

PATIENT
  Age: 70 Year
  Sex: Male

DRUGS (1)
  1. OSLIF BREEZHALER [Suspect]

REACTIONS (1)
  - VASCULITIS [None]
